FAERS Safety Report 6236648-1 (Version None)
Quarter: 2009Q2

REPORT INFORMATION
  Report Type: 
  Country: None (occurrence: None)
  Receive Date: 20090619
  Receipt Date: 20081117
  Transmission Date: 20091009
  Serious: No
  Sender: FDA-Public Use
  Company Number: US-ASTRAZENECA-2008UW25546

PATIENT

DRUGS (1)
  1. ATACAND [Suspect]
     Dosage: 32 MG
     Route: 048

REACTIONS (1)
  - BLOOD CREATININE INCREASED [None]
